FAERS Safety Report 13901466 (Version 1)
Quarter: 2017Q3

REPORT INFORMATION
  Report Type: Spontaneous
  Country: US (occurrence: US)
  Receive Date: 20170824
  Receipt Date: 20170824
  Transmission Date: 20171127
  Serious: No
  Sender: FDA-Public Use
  Company Number: US-GILEAD-2017-0289550

PATIENT
  Age: 58 Year
  Sex: Male

DRUGS (5)
  1. ALPRAZOLAM. [Concomitant]
     Active Substance: ALPRAZOLAM
  2. PEGINTERFERON ALFA-2A. [Concomitant]
     Active Substance: PEGINTERFERON ALFA-2A
     Indication: HEPATITIS C
     Dosage: 180 UG, Q1WK
     Route: 065
     Dates: start: 20140414
  3. RIBAVIRIN. [Concomitant]
     Active Substance: RIBAVIRIN
     Indication: HEPATITIS C
     Dosage: 400 MG, QD
     Route: 048
  4. RIBAVIRIN. [Concomitant]
     Active Substance: RIBAVIRIN
     Dosage: 400 MG, BID
     Route: 048
     Dates: start: 20140414
  5. SOVALDI [Suspect]
     Active Substance: SOFOSBUVIR
     Indication: HEPATITIS C
     Dosage: UNK
     Route: 065
     Dates: start: 20140414

REACTIONS (10)
  - Decreased appetite [Unknown]
  - Anxiety [Unknown]
  - Haemoglobin decreased [Unknown]
  - Influenza like illness [Recovered/Resolved]
  - Mood swings [Unknown]
  - Dyspnoea [Recovered/Resolved]
  - Sleep disorder [Unknown]
  - Skin burning sensation [Recovering/Resolving]
  - Irritability [Unknown]
  - Feeling abnormal [Unknown]
